FAERS Safety Report 7681713-5 (Version None)
Quarter: 2011Q3

REPORT INFORMATION
  Report Type: 
  Country: None (occurrence: None)
  Receive Date: 20110812
  Receipt Date: 20110728
  Transmission Date: 20111222
  Serious: Yes (Hospitalization, Other)
  Sender: FDA-Public Use
  Company Number: IN-WATSON-2011-12436

PATIENT
  Age: 11 Year
  Sex: Male

DRUGS (2)
  1. PREDNISOLONE [Suspect]
     Indication: HYPEREOSINOPHILIC SYNDROME
     Dosage: 1 MG/KG, DAILY
     Route: 048
  2. METHYLPREDNISOLONE [Suspect]
     Indication: HYPEREOSINOPHILIC SYNDROME
     Dosage: 30 MG/KG, DAILY X 3 DAYS
     Route: 042

REACTIONS (3)
  - GASTRITIS [None]
  - OBESITY [None]
  - DRUG INEFFECTIVE [None]
